FAERS Safety Report 6525443-1 (Version None)
Quarter: 2010Q1

REPORT INFORMATION
  Report Type: 
  Country: None (occurrence: None)
  Receive Date: 20100104
  Receipt Date: 20091229
  Transmission Date: 20100710
  Serious: Yes (Other)
  Sender: FDA-Public Use
  Company Number: CHPA2009US24188

PATIENT
  Sex: Female

DRUGS (1)
  1. MAALOX ADV MAXIMUM STRENGTH ANTACID/ANTIGAS (NCH) [Suspect]
     Dosage: 3 TSP, QID
     Route: 048
     Dates: start: 20091223

REACTIONS (2)
  - BLOOD PRESSURE INCREASED [None]
  - OVERDOSE [None]
